FAERS Safety Report 8485818-0 (Version None)
Quarter: 2012Q3

REPORT INFORMATION
  Report Type: 
  Country: None (occurrence: None)
  Receive Date: 20120703
  Receipt Date: 20120620
  Transmission Date: 20120928
  Serious: Yes (Other)
  Sender: FDA-Public Use
  Company Number: PHHY2012BR042419

PATIENT
  Sex: Male
  Weight: 57 kg

DRUGS (3)
  1. DIOVAN [Suspect]
     Dosage: UNK
  2. LEVOTHYROXINE SODIUM [Concomitant]
     Indication: HYPERTHYROIDISM
     Dosage: 1 TABLET IN THE MORNING,
  3. DIOVAN HCT [Suspect]
     Indication: HYPERTENSION
     Dosage: 1 TABLET IN THE MORNING

REACTIONS (5)
  - AGITATION [None]
  - MEMORY IMPAIRMENT [None]
  - DEMENTIA ALZHEIMER'S TYPE [None]
  - COUGH [None]
  - INCREASED UPPER AIRWAY SECRETION [None]
